FAERS Safety Report 7299166-8 (Version None)
Quarter: 2011Q1

REPORT INFORMATION
  Report Type: 
  Country: None (occurrence: None)
  Receive Date: 20110217
  Receipt Date: 20110216
  Transmission Date: 20110831
  Serious: Yes (Hospitalization, Disabling, Other)
  Sender: FDA-Public Use
  Company Number: GB-ABBOTT-11P-167-0705567-00

PATIENT
  Age: 31 Year
  Sex: Female

DRUGS (2)
  1. ERYTHROMYCIN [Suspect]
     Indication: LARYNGITIS
     Route: 048
     Dates: start: 20110118, end: 20110120
  2. NORDETTE-28 [Concomitant]
     Indication: CONTRACEPTION
     Route: 047

REACTIONS (2)
  - CHAPPED LIPS [None]
  - MOUTH ULCERATION [None]
